FAERS Safety Report 5495739-3 (Version None)
Quarter: 2007Q4

REPORT INFORMATION
  Report Type: 
  Country: None (occurrence: None)
  Receive Date: 20071025
  Receipt Date: 20061012
  Transmission Date: 20080405
  Serious: No
  Sender: FDA-Public Use
  Company Number: A0623384A

PATIENT
  Age: 78 Year
  Sex: Male

DRUGS (10)
  1. ADVAIR DISKUS 100/50 [Suspect]
     Indication: ASTHMA
     Dosage: 1PUFF TWICE PER DAY
     Route: 055
     Dates: start: 20061011
  2. PLAVIX [Concomitant]
  3. PREDNISONE [Concomitant]
  4. NEORAL [Concomitant]
  5. ASPIRIN [Concomitant]
  6. PROSCAR [Concomitant]
  7. AVANDIA [Concomitant]
  8. VYTORIN [Concomitant]
  9. GLIPIZIDE [Concomitant]
  10. NORVASC [Concomitant]

REACTIONS (3)
  - FLUSHING [None]
  - NERVOUSNESS [None]
  - TREMOR [None]
